FAERS Safety Report 13791647 (Version 1)
Quarter: 2017Q3

REPORT INFORMATION
  Report Type: Spontaneous
  Country: BR (occurrence: BR)
  Receive Date: 20170725
  Receipt Date: 20170725
  Transmission Date: 20171127
  Serious: Yes (Other)
  Sender: FDA-Public Use
  Company Number: PHHY2015BR114318

PATIENT
  Age: 14 Year
  Sex: Male
  Weight: 41.5 kg

DRUGS (1)
  1. ILARIS [Suspect]
     Active Substance: CANAKINUMAB
     Dosage: 500 MG
     Route: 058
     Dates: start: 20150505

REACTIONS (6)
  - Leukopenia [Unknown]
  - Drug ineffective [Unknown]
  - Nasopharyngitis [Recovered/Resolved]
  - Rhinitis [Unknown]
  - Impetigo [Unknown]
  - Pyrexia [Unknown]

NARRATIVE: CASE EVENT DATE: 20150607
